FAERS Safety Report 13082264 (Version 1)
Quarter: 2017Q1

REPORT INFORMATION
  Report Type: Spontaneous
  Country: US (occurrence: FR)
  Receive Date: 20170103
  Receipt Date: 20170103
  Transmission Date: 20170428
  Serious: Yes (Other)
  Sender: FDA-Public Use
  Company Number: US-SUNOVION-2016SUN003314

PATIENT

DRUGS (5)
  1. AVAMYS [Suspect]
     Active Substance: FLUTICASONE FUROATE
     Indication: PRODUCT USED FOR UNKNOWN INDICATION
     Dosage: UNK, QD
     Route: 055
  2. AVAMYS [Suspect]
     Active Substance: FLUTICASONE FUROATE
     Dosage: UNK, QD
     Route: 055
     Dates: start: 20161010, end: 20161102
  3. ALVESCO [Suspect]
     Active Substance: CICLESONIDE
     Dosage: UNK, QD
     Route: 055
  4. SOLUPRED                           /00016217/ [Suspect]
     Active Substance: PREDNISOLONE
     Indication: PRODUCT USED FOR UNKNOWN INDICATION
     Dosage: 2 DF, QD
     Route: 048
     Dates: start: 20161010, end: 20161102
  5. ALVESCO [Suspect]
     Active Substance: CICLESONIDE
     Dosage: UNK, QD
     Route: 055
     Dates: start: 20161010, end: 20161102

REACTIONS (2)
  - Visual impairment [Not Recovered/Not Resolved]
  - Visual acuity reduced [Not Recovered/Not Resolved]

NARRATIVE: CASE EVENT DATE: 201610
